FAERS Safety Report 7983399-9 (Version None)
Quarter: 2011Q4

REPORT INFORMATION
  Report Type: 
  Country: None (occurrence: None)
  Receive Date: 20111215
  Receipt Date: 20111208
  Transmission Date: 20120403
  Serious: Yes (Hospitalization, Other)
  Sender: FDA-Public Use
  Company Number: BR-ABBOTT-11P-020-0872212-00

PATIENT
  Sex: Female
  Weight: 70 kg

DRUGS (3)
  1. HUMIRA [Suspect]
     Indication: CROHN'S DISEASE
     Route: 058
     Dates: start: 20110903
  2. HUMIRA [Suspect]
     Route: 058
  3. HUMIRA [Suspect]
     Route: 058
     Dates: start: 20111105

REACTIONS (16)
  - HEADACHE [None]
  - RENAL PAIN [None]
  - PYREXIA [None]
  - PAIN [None]
  - BACK PAIN [None]
  - PARAESTHESIA [None]
  - ARTHRALGIA [None]
  - ANAEMIA [None]
  - INFLUENZA [None]
  - DIZZINESS [None]
  - OEDEMA PERIPHERAL [None]
  - PAIN IN EXTREMITY [None]
  - CHILLS [None]
  - PYELONEPHRITIS ACUTE [None]
  - ESCHERICHIA INFECTION [None]
  - BLOOD CALCIUM DECREASED [None]
